FAERS Safety Report 23496544 (Version 1)
Quarter: 2024Q1

REPORT INFORMATION
  Report Type: Spontaneous
  Country: US (occurrence: None)
  Receive Date: 20240207
  Receipt Date: 20240207
  Transmission Date: 20240410
  Serious: Yes (Death)
  Sender: FDA-Public Use
  Company Number: None

PATIENT
  Age: 60 Year
  Sex: Male

DRUGS (2)
  1. CYCLOSPORINE [Suspect]
     Active Substance: CYCLOSPORINE
     Indication: Renal transplant
     Dosage: 50 MG TWICE A DAY ORAL
     Route: 048
  2. SIROLIMUS [Suspect]
     Active Substance: SIROLIMUS
     Dosage: 1 MG DAILY OAL
     Route: 048

REACTIONS (1)
  - Disease complication [None]

NARRATIVE: CASE EVENT DATE: 20240125
